FAERS Safety Report 9780989 (Version 1)
Quarter: 2013Q4

REPORT INFORMATION
  Report Type: Spontaneous
  Country: NZ (occurrence: NZ)
  Receive Date: 20131224
  Receipt Date: 20131224
  Transmission Date: 20140711
  Serious: Yes (Hospitalization)
  Sender: FDA-Public Use
  Company Number: NZ-JNJFOC-20131212579

PATIENT
  Age: 77 Year
  Sex: Male

DRUGS (3)
  1. RISPERIDONE CONSTA [Suspect]
     Indication: SCHIZOPHRENIA
     Route: 030
  2. CLOZAPINE [Suspect]
     Indication: SCHIZOPHRENIA
     Route: 065
  3. CLOZAPINE [Suspect]
     Indication: SCHIZOPHRENIA
     Route: 065

REACTIONS (2)
  - Akathisia [Unknown]
  - Psychotic disorder [Unknown]
